FAERS Safety Report 20504234 (Version 2)
Quarter: 2022Q1

REPORT INFORMATION
  Report Type: Report from Study
  Country: AU (occurrence: AU)
  Receive Date: 20220222
  Receipt Date: 20220324
  Transmission Date: 20220423
  Serious: Yes (Death, Hospitalization)
  Sender: FDA-Public Use
  Company Number: AU-ABBVIE-22K-008-4288024-00

PATIENT
  Sex: Male
  Weight: 85 kg

DRUGS (11)
  1. CARBIDOPA\LEVODOPA [Suspect]
     Active Substance: CARBIDOPA\LEVODOPA
     Indication: Parkinson^s disease
     Dosage: MORNING DOSE: 12.5ML CONTINUOUS DOSE: 4.1ML/HR EXTRA DOSE: 1.6ML?20 MG/ML 5 MG/ML
     Route: 050
     Dates: start: 20160804, end: 20211118
  2. CARBIDOPA\LEVODOPA [Suspect]
     Active Substance: CARBIDOPA\LEVODOPA
  3. METOCLOPRAMIDE HYDROCHLORIDE [Concomitant]
     Active Substance: METOCLOPRAMIDE HYDROCHLORIDE
     Indication: Nausea
     Route: 058
     Dates: start: 20220104, end: 20220108
  4. METOCLOPRAMIDE HYDROCHLORIDE [Concomitant]
     Active Substance: METOCLOPRAMIDE HYDROCHLORIDE
     Indication: Vomiting
  5. MICROLAX [Concomitant]
     Indication: Constipation
     Route: 054
     Dates: start: 20211203, end: 20220108
  6. MIDAZOLAM [Concomitant]
     Active Substance: MIDAZOLAM
     Indication: Agitation
     Dosage: 2.5 TO 5MG
     Route: 058
     Dates: start: 20220105, end: 20220108
  7. MIDAZOLAM [Concomitant]
     Active Substance: MIDAZOLAM
     Indication: Dyspnoea
  8. MIDAZOLAM [Concomitant]
     Active Substance: MIDAZOLAM
     Indication: Anxiety
  9. MORPHINE [Concomitant]
     Active Substance: MORPHINE
     Indication: Pain
     Dosage: 2.5-5MG
     Route: 058
     Dates: start: 20220105, end: 20220108
  10. MORPHINE [Concomitant]
     Active Substance: MORPHINE
     Indication: Dyspnoea
  11. ROTIGOTINE [Concomitant]
     Active Substance: ROTIGOTINE
     Indication: Parkinson^s disease
     Dosage: IN THE MORNING
     Route: 062
     Dates: start: 20211123, end: 20220108

REACTIONS (3)
  - COVID-19 pneumonia [Fatal]
  - Agitation [Unknown]
  - Delirium [Unknown]
